FAERS Safety Report 9479220 (Version 1)
Quarter: 2013Q3

REPORT INFORMATION
  Report Type: Spontaneous
  Country: MX (occurrence: MX)
  Receive Date: 20130827
  Receipt Date: 20130827
  Transmission Date: 20140515
  Serious: Yes (Other)
  Sender: FDA-Public Use
  Company Number: MX-B.I. PHARMACEUTICALS,INC./RIDGEFIELD-2013-MX-00264MX

PATIENT
  Sex: Male

DRUGS (1)
  1. PRADAXAR [Suspect]
     Indication: ARRHYTHMIA PROPHYLAXIS
     Dates: start: 2012, end: 2012

REACTIONS (1)
  - Hepatic enzyme increased [Unknown]
